FAERS Safety Report 9360809 (Version 3)
Quarter: 2013Q4

REPORT INFORMATION
  Report Type: Spontaneous
  Country: GB (occurrence: None)
  Receive Date: 20130618
  Receipt Date: 20131017
  Transmission Date: 20140711
  Serious: Yes (Life-Threatening, Other)
  Sender: FDA-Public Use
  Company Number: AUR-APL-2013-04797

PATIENT
  Age: 33 Year
  Sex: Male
  Weight: 69.95 kg

DRUGS (4)
  1. QUETIAPINE [Suspect]
     Indication: MAJOR DEPRESSION
     Dosage: INITIALLY COMMENCED ON 50MG TWICE DAILY, INCREASED OVER 6 DAYS TO 100MG TWICE DAILY, ORAL
     Route: 048
     Dates: start: 20130503, end: 20130503
  2. AMITRIPTYLINE [Suspect]
     Indication: DEPRESSION
     Dosage: INITIALLY COMMENCED ON 50MG AT NIGHT, INCREASED OVER A SPACE OF 6 DAYS TO 150MG AT NIGHT, ORAL
     Route: 048
     Dates: start: 20130503, end: 201305
  3. CITALOPRAM (CITALOPRAM) [Concomitant]
  4. TEMAZEPAM (TEMAZEPAM) [Concomitant]

REACTIONS (4)
  - Deep vein thrombosis [None]
  - Pulmonary embolism [None]
  - Atelectasis [None]
  - Bundle branch block right [None]
